FAERS Safety Report 14275027 (Version 1)
Quarter: 2017Q4

REPORT INFORMATION
  Report Type: Spontaneous
  Country: GB (occurrence: GB)
  Receive Date: 20171211
  Receipt Date: 20171211
  Transmission Date: 20180321
  Serious: Yes (Other)
  Sender: FDA-Public Use
  Company Number: GB-OTSUKA-DJ201304058

PATIENT
  Age: 45 Year

DRUGS (1)
  1. ABILIFY [Suspect]
     Active Substance: ARIPIPRAZOLE
     Indication: PSYCHOTIC DISORDER
     Dosage: UNK
     Route: 065
     Dates: start: 2009, end: 2010

REACTIONS (3)
  - Heart rate irregular [Unknown]
  - Angina pectoris [Unknown]
  - Off label use [Unknown]

NARRATIVE: CASE EVENT DATE: 2009
